FAERS Safety Report 21324099 (Version 1)
Quarter: 2022Q3

REPORT INFORMATION
  Report Type: Spontaneous
  Country: DE (occurrence: DE)
  Receive Date: 20220912
  Receipt Date: 20220912
  Transmission Date: 20221027
  Serious: Yes (Other)
  Sender: FDA-Public Use
  Company Number: DE-MYLANLABS-2022M1092383

PATIENT
  Age: 70 Year
  Sex: Female

DRUGS (7)
  1. FLUOROURACIL [Suspect]
     Active Substance: FLUOROURACIL
     Indication: Colorectal cancer metastatic
     Dosage: UNK, CYCLE (12 CYCLES OF ADJUVANT CHEMOTHERAPY WITH FOLFOX FOR RESECTABLE CARCINOMA OF THE COLON DES
     Route: 065
     Dates: start: 2016
  2. FLUOROURACIL [Suspect]
     Active Substance: FLUOROURACIL
     Dosage: UNK, CYCLE
     Route: 065
     Dates: start: 2020
  3. OXALIPLATIN [Suspect]
     Active Substance: OXALIPLATIN
     Indication: Colorectal cancer metastatic
     Dosage: UNK, CYCLE (12 CYCLES OF ADJUVANT CHEMOTHERAPY WITH FOLFOX FOR RESECTABLE CARCINOMA OF THE COLON DES
     Route: 065
     Dates: start: 2016
  4. OXALIPLATIN [Suspect]
     Active Substance: OXALIPLATIN
     Dosage: UNK, CYCLE
     Route: 065
     Dates: start: 2020
  5. LEUCOVORIN [Suspect]
     Active Substance: LEUCOVORIN
     Indication: Colorectal cancer metastatic
     Dosage: UNK, CYCLE (12 CYCLES OF ADJUVANT CHEMOTHERAPY WITH FOLFOX FOR RESECTABLE CARCINOMA OF THE COLON DES
     Route: 065
     Dates: start: 2016
  6. LEUCOVORIN [Suspect]
     Active Substance: LEUCOVORIN
     Dosage: UNK, CYCLE
     Route: 065
     Dates: start: 2020
  7. BEVACIZUMAB [Suspect]
     Active Substance: BEVACIZUMAB
     Indication: Colorectal cancer metastatic
     Dosage: UNK
     Route: 065
     Dates: start: 2020

REACTIONS (2)
  - Drug ineffective [Unknown]
  - Disease progression [Unknown]
